FAERS Safety Report 9300392 (Version 4)
Quarter: 2013Q4

REPORT INFORMATION
  Report Type: Spontaneous
  Country: US (occurrence: US)
  Receive Date: 20130521
  Receipt Date: 20131107
  Transmission Date: 20140711
  Serious: Yes (Hospitalization, Congenital Anomaly, Other)
  Sender: FDA-Public Use
  Company Number: US-PFIZER INC-2013152089

PATIENT
  Sex: Male
  Weight: 2.6 kg

DRUGS (8)
  1. ZOLOFT [Suspect]
     Indication: DEPRESSION
     Dosage: UNK
     Route: 064
     Dates: start: 200308
  2. ZOLOFT [Suspect]
     Dosage: 50 MG, 1X/DAY (AT BED TIME)
     Route: 064
     Dates: start: 20030821
  3. ZOLOFT [Suspect]
     Dosage: UNK
     Route: 064
     Dates: start: 20030909
  4. ZOLOFT [Suspect]
     Dosage: 100 MG, 1X/DAY
     Route: 064
     Dates: start: 20031208
  5. LOPRESSOR [Concomitant]
     Dosage: 50 MG, 1X/DAY
     Route: 064
     Dates: start: 20030724
  6. PRENATAL VITAMINS [Concomitant]
     Dosage: UNK
     Route: 064
     Dates: start: 20030909
  7. CLARITIN [Concomitant]
     Dosage: UNK, ONCE DAILY
     Route: 064
     Dates: start: 20031010
  8. ZITHROMAX [Concomitant]
     Dosage: UNK, ONCE DAILY
     Route: 064
     Dates: start: 20031010

REACTIONS (2)
  - Maternal exposure during pregnancy [Unknown]
  - Hypospadias [Unknown]
